FAERS Safety Report 5419028-8 (Version None)
Quarter: 2007Q3

REPORT INFORMATION
  Report Type: 
  Country: None (occurrence: None)
  Receive Date: 20070820
  Receipt Date: 20070626
  Transmission Date: 20080115
  Serious: Yes (Other)
  Sender: FDA-Public Use
  Company Number: FR-ELI_LILLY_AND_COMPANY-FR200707001184

PATIENT
  Age: 85 Year
  Sex: Male

DRUGS (1)
  1. PEMETREXED [Suspect]
     Indication: NON-SMALL CELL LUNG CANCER

REACTIONS (2)
  - GENERAL PHYSICAL HEALTH DETERIORATION [None]
  - TOXIC EPIDERMAL NECROLYSIS [None]
